FAERS Safety Report 8022130-8 (Version None)
Quarter: 2012Q1

REPORT INFORMATION
  Report Type: 
  Country: None (occurrence: None)
  Receive Date: 20120104
  Receipt Date: 20120103
  Transmission Date: 20120608
  Serious: Yes (Other)
  Sender: FDA-Public Use
  Company Number: US-PFIZER INC-2011221637

PATIENT
  Sex: Male
  Weight: 87.075 kg

DRUGS (4)
  1. BEXTRA [Suspect]
     Dosage: UNK
  2. AMLODIPINE [Concomitant]
     Dosage: 200 MG, 2X/DAY
  3. CELEBREX [Suspect]
     Indication: GASTROINTESTINAL PAIN
     Dosage: UNK
     Route: 048
  4. VIOXX [Suspect]
     Dosage: UNK

REACTIONS (2)
  - CEREBROVASCULAR ACCIDENT [None]
  - MYOCARDIAL INFARCTION [None]
